FAERS Safety Report 18370149 (Version 2)
Quarter: 2020Q4

REPORT INFORMATION
  Report Type: Report from Study
  Country: US (occurrence: US)
  Receive Date: 20201012
  Receipt Date: 20201210
  Transmission Date: 20210114
  Serious: No
  Sender: FDA-Public Use
  Company Number: US-SHIRE-US202033129

PATIENT
  Sex: Female

DRUGS (4)
  1. TEDUGLUTIDE [Suspect]
     Active Substance: TEDUGLUTIDE
     Indication: PRODUCT USED FOR UNKNOWN INDICATION
     Dosage: 0.27 UNIT, 1X/DAY:QD
     Route: 058
     Dates: start: 20190522
  2. TEDUGLUTIDE [Suspect]
     Active Substance: TEDUGLUTIDE
     Indication: PRODUCT USED FOR UNKNOWN INDICATION
     Dosage: 0.27 UNIT, 1X/DAY:QD
     Route: 058
     Dates: start: 20190522
  3. TEDUGLUTIDE [Suspect]
     Active Substance: TEDUGLUTIDE
     Indication: PRODUCT USED FOR UNKNOWN INDICATION
     Dosage: 0.27 UNIT, 1X/DAY:QD
     Route: 058
     Dates: start: 20190522
  4. TEDUGLUTIDE [Suspect]
     Active Substance: TEDUGLUTIDE
     Indication: PRODUCT USED FOR UNKNOWN INDICATION
     Dosage: 0.27 UNIT, 1X/DAY:QD
     Route: 058
     Dates: start: 20190522

REACTIONS (3)
  - Headache [Not Recovered/Not Resolved]
  - Muscular weakness [Unknown]
  - Hot flush [Not Recovered/Not Resolved]
